FAERS Safety Report 14461483 (Version 1)
Quarter: 2018Q1

REPORT INFORMATION
  Report Type: Report from Study
  Country: BR (occurrence: BR)
  Receive Date: 20180130
  Receipt Date: 20180130
  Transmission Date: 20180509
  Serious: Yes (Other)
  Sender: FDA-Public Use
  Company Number: PHHY2018BR014220

PATIENT
  Age: 71 Year
  Sex: Female
  Weight: 45 kg

DRUGS (2)
  1. ACLASTA [Suspect]
     Active Substance: ZOLEDRONIC ACID
     Indication: OSTEOPOROSIS
     Dosage: 1 DF, Q12MO
     Route: 042
     Dates: start: 20161202
  2. ACLASTA [Suspect]
     Active Substance: ZOLEDRONIC ACID
     Dosage: 1 DF, Q12MO
     Route: 042
     Dates: start: 201712

REACTIONS (10)
  - Osteoarthritis [Not Recovered/Not Resolved]
  - Weight increased [Unknown]
  - Malaise [Unknown]
  - Dizziness [Unknown]
  - Intraocular pressure increased [Not Recovered/Not Resolved]
  - Hiatus hernia [Unknown]
  - Labyrinthitis [Unknown]
  - Reflux gastritis [Unknown]
  - Drug ineffective [Unknown]
  - Dyspepsia [Unknown]

NARRATIVE: CASE EVENT DATE: 201712
